FAERS Safety Report 9057854 (Version 1)
Quarter: 2013Q1

REPORT INFORMATION
  Report Type: Spontaneous
  Country: US (occurrence: None)
  Receive Date: 20130204
  Receipt Date: 20130204
  Transmission Date: 20140127
  Serious: No
  Sender: FDA-Public Use
  Company Number: None

PATIENT
  Age: 59 None
  Sex: Female
  Weight: 96.2 kg

DRUGS (1)
  1. LEVAQUIN 500MG UNKNOWN [Suspect]
     Indication: INFECTION
     Route: 042
     Dates: start: 20130102, end: 20130105

REACTIONS (1)
  - Injection site pruritus [None]
